FAERS Safety Report 16497503 (Version 3)
Quarter: 2019Q3

REPORT INFORMATION
  Report Type: Spontaneous
  Country: GB (occurrence: GB)
  Receive Date: 20190628
  Receipt Date: 20190711
  Transmission Date: 20191004
  Serious: Yes (Death, Other)
  Sender: FDA-Public Use
  Company Number: GB-MYLANLABS-2019M1060474

PATIENT
  Age: 39 Year
  Sex: Male
  Weight: 86 kg

DRUGS (2)
  1. CLOZARIL [Suspect]
     Active Substance: CLOZAPINE
     Dosage: 300 MILLIGRAM, PM
     Route: 048
     Dates: start: 20181203
  2. CLOZARIL [Suspect]
     Active Substance: CLOZAPINE
     Indication: SCHIZOPHRENIA
     Dosage: 50 MILLIGRAM, AM
     Route: 048
     Dates: start: 20181203

REACTIONS (2)
  - Fall [Unknown]
  - Death [Fatal]

NARRATIVE: CASE EVENT DATE: 20190620
